FAERS Safety Report 11704162 (Version 1)
Quarter: 2015Q4

REPORT INFORMATION
  Report Type: Spontaneous
  Country: US (occurrence: US)
  Receive Date: 20151106
  Receipt Date: 20151106
  Transmission Date: 20160304
  Serious: No
  Sender: FDA-Public Use
  Company Number: US-BAYER-2015-446738

PATIENT
  Age: 90 Day
  Sex: Male

DRUGS (1)
  1. DESONATE [Suspect]
     Active Substance: DESONIDE
     Dosage: UNK
     Route: 061

REACTIONS (2)
  - Skin discolouration [None]
  - Skin disorder [None]
